FAERS Safety Report 5894335-3 (Version None)
Quarter: 2008Q3

REPORT INFORMATION
  Report Type: 
  Country: None (occurrence: None)
  Receive Date: 20080922
  Receipt Date: 20080908
  Transmission Date: 20090109
  Serious: Yes (Hospitalization)
  Sender: FDA-Public Use
  Company Number: 2008SP002124

PATIENT
  Age: 3 Year
  Sex: Female

DRUGS (4)
  1. XOPENEX [Suspect]
     Dosage: Q8H;INHALATION
     Route: 055
  2. MULTI-VITAMINS [Concomitant]
  3. CALCIUM CARBONATE [Concomitant]
  4. . [Concomitant]

REACTIONS (3)
  - ACUTE RESPIRATORY DISTRESS SYNDROME [None]
  - ATELECTASIS [None]
  - PNEUMONIA RESPIRATORY SYNCYTIAL VIRAL [None]
